FAERS Safety Report 15948283 (Version 1)
Quarter: 2019Q1

REPORT INFORMATION
  Report Type: Spontaneous
  Country: GR (occurrence: GR)
  Receive Date: 20190212
  Receipt Date: 20190212
  Transmission Date: 20190417
  Serious: Yes (Life-Threatening)
  Sender: FDA-Public Use
  Company Number: GR-TEVA-2019-GR-1011881

PATIENT
  Age: 42 Year
  Sex: Female
  Weight: 64 kg

DRUGS (2)
  1. OXALIPLATIN TEVA [Suspect]
     Active Substance: OXALIPLATIN
     Indication: GASTRIC CANCER
     Route: 042
     Dates: start: 20111027, end: 20111027
  2. DENTRON 8MG/4ML [Concomitant]
     Route: 065
     Dates: start: 20110927

REACTIONS (8)
  - Blood pressure decreased [Recovering/Resolving]
  - Erythema [Recovering/Resolving]
  - Oral pruritus [Recovering/Resolving]
  - Bronchospasm [Recovering/Resolving]
  - Tachycardia [Recovering/Resolving]
  - Pruritus [Recovering/Resolving]
  - Hypersensitivity [Recovering/Resolving]
  - Dyspnoea [Recovering/Resolving]

NARRATIVE: CASE EVENT DATE: 20111027
